FAERS Safety Report 13944044 (Version 1)
Quarter: 2017Q3

REPORT INFORMATION
  Report Type: Spontaneous
  Country: US (occurrence: US)
  Receive Date: 20170907
  Receipt Date: 20170907
  Transmission Date: 20171128
  Serious: No
  Sender: FDA-Public Use
  Company Number: US-ROCHE-1427218

PATIENT
  Age: 74 Year
  Sex: Female

DRUGS (2)
  1. ATENOLOL. [Concomitant]
     Active Substance: ATENOLOL
     Indication: HYPERTENSION
  2. RITUXAN [Suspect]
     Active Substance: RITUXIMAB
     Indication: CHRONIC LYMPHOCYTIC LEUKAEMIA
     Route: 065

REACTIONS (4)
  - Blood pressure decreased [Unknown]
  - Presyncope [Unknown]
  - Cold sweat [Unknown]
  - Hypotension [Unknown]
